FAERS Safety Report 7822135-3 (Version None)
Quarter: 2011Q4

REPORT INFORMATION
  Report Type: 
  Country: None (occurrence: None)
  Receive Date: 20111018
  Receipt Date: 20101105
  Transmission Date: 20120403
  Serious: No
  Sender: FDA-Public Use
  Company Number: US-ASTRAZENECA-2010SE30768

PATIENT
  Age: 46 Year
  Sex: Male
  Weight: 115.7 kg

DRUGS (1)
  1. SYMBICORT [Suspect]
     Indication: ASTHMA
     Dosage: 80/4.5, 2 PUFFS, TWO TIMES A DAY.
     Route: 055
     Dates: start: 20090101

REACTIONS (2)
  - CHEST DISCOMFORT [None]
  - DRUG EFFECT DECREASED [None]
